FAERS Safety Report 18641979 (Version 3)
Quarter: 2021Q2

REPORT INFORMATION
  Report Type: Report from Study
  Country: AU (occurrence: AU)
  Receive Date: 20201221
  Receipt Date: 20210503
  Transmission Date: 20210717
  Serious: Yes (Hospitalization)
  Sender: FDA-Public Use
  Company Number: AU-GLAXOSMITHKLINE-AU2020GSK115026

PATIENT
  Age: 68 Year
  Sex: Female

DRUGS (30)
  1. BELANTAMAB MAFODOTIN. [Suspect]
     Active Substance: BELANTAMAB MAFODOTIN
     Indication: PLASMA CELL MYELOMA
     Dosage: 2.5 MG/KG, CYC
     Route: 042
  2. PARACETAMOL [Concomitant]
     Active Substance: ACETAMINOPHEN
     Dosage: 2 DF, TID
     Route: 048
     Dates: start: 20190520
  3. ASPIRIN. [Concomitant]
     Active Substance: ASPIRIN
     Indication: PROPHYLAXIS
     Dosage: 100 MG, QD
     Route: 048
     Dates: start: 20200415
  4. ONDANSETRON [Concomitant]
     Active Substance: ONDANSETRON
     Indication: NAUSEA
     Dosage: 4 MG, AS REQUIRED
     Route: 048
     Dates: start: 20200422
  5. BACTRIM DS [Concomitant]
     Active Substance: SULFAMETHOXAZOLE\TRIMETHOPRIM
     Indication: PROPHYLAXIS
     Dosage: 860 MG, 3 TIMES PER WEEK
     Route: 048
     Dates: start: 20200515, end: 20200522
  6. FILGRASTIM [Concomitant]
     Active Substance: FILGRASTIM
     Indication: NEUTROPENIA
     Dosage: 300 UG, 2 TIMES PER WEEK
     Route: 058
     Dates: start: 20200804, end: 20201012
  7. FILGRASTIM [Concomitant]
     Active Substance: FILGRASTIM
     Dosage: 300 UG, ONCE A WEEK
     Route: 058
     Dates: start: 20201013
  8. VENTOLIN [Concomitant]
     Active Substance: ALBUTEROL SULFATE
     Indication: DYSPNOEA
     Dosage: 100 UG, AS REQUIRED
     Route: 055
     Dates: start: 201707
  9. ESOMEPRAZOLE. [Concomitant]
     Active Substance: ESOMEPRAZOLE MAGNESIUM
     Indication: GASTROOESOPHAGEAL REFLUX DISEASE
     Dosage: 20 MG, AS REQUIRED
     Route: 048
     Dates: start: 20190102
  10. TEMAZEPAM. [Concomitant]
     Active Substance: TEMAZEPAM
     Indication: PSYCHIATRIC DISORDER PROPHYLAXIS
     Dosage: 10 MG, AS REQUIRED
     Route: 048
     Dates: start: 20200415
  11. MOVICOL [Concomitant]
     Active Substance: POLYETHYLENE GLYCOL 3350\POTASSIUM CHLORIDE\SODIUM BICARBONATE\SODIUM CHLORIDE
     Indication: CONSTIPATION
     Dosage: 1 DF, AS REQUIRED
     Route: 048
     Dates: start: 2019
  12. FUROSEMIDE. [Concomitant]
     Active Substance: FUROSEMIDE
     Indication: FLUID RETENTION
     Dosage: 20 MG, QD
     Route: 048
     Dates: start: 2018
  13. PAROXETINE. [Concomitant]
     Active Substance: PAROXETINE
     Indication: DEPRESSION
     Dosage: 20 MG, QD
     Route: 048
     Dates: start: 201203
  14. ZOLEDRONIC ACID. [Concomitant]
     Active Substance: ZOLEDRONIC ACID
     Indication: PROPHYLAXIS
     Dosage: 4 MG (ONCE A MONTH)
     Route: 042
     Dates: start: 20160108
  15. BACTRIM DS [Concomitant]
     Active Substance: SULFAMETHOXAZOLE\TRIMETHOPRIM
     Dosage: 860 MG, 3 TIMES PER WEEK
     Route: 048
     Dates: start: 20200717
  16. BUPRENORPHINE. [Concomitant]
     Active Substance: BUPRENORPHINE
     Indication: PAIN
     Dosage: 200 UG, AS REQUIRED
     Route: 060
     Dates: start: 20200904, end: 20200909
  17. COLOXYL AND SENNA [Concomitant]
     Indication: CONSTIPATION
     Dosage: 1 DF, QD
     Route: 048
     Dates: start: 20200806, end: 20200806
  18. ONDANSETRON [Concomitant]
     Active Substance: ONDANSETRON
     Dosage: 8 MG, ONCE ONLY
     Route: 042
     Dates: start: 20200522, end: 20200522
  19. INTAL FORTE [Concomitant]
     Indication: DYSPNOEA
     Dosage: 5 MG, BID
     Route: 055
     Dates: start: 201707
  20. ALVESCO [Concomitant]
     Active Substance: CICLESONIDE
     Indication: DYSPNOEA
     Dosage: 160 UG, BID
     Route: 055
     Dates: start: 201707
  21. ALENDRONATE + CALCIUM CARBONATE + COLECALCIFEROL [Concomitant]
     Indication: PROPHYLAXIS
     Dosage: 1 DF,  QD
     Route: 048
     Dates: start: 201801
  22. VALACICLOVIR [Concomitant]
     Active Substance: VALACYCLOVIR HYDROCHLORIDE
     Indication: ANTIVIRAL PROPHYLAXIS
     Dosage: 500 MG, QD
     Route: 048
     Dates: start: 20180723
  23. BROMHEXINE HYDROCHLORIDE [Concomitant]
     Active Substance: BROMHEXINE HYDROCHLORIDE
     Indication: COUGH
     Dosage: 1 DF, QD
     Route: 048
     Dates: start: 2018
  24. LENALIDOMIDE+DEXAMETHASONE [Suspect]
     Active Substance: DEXAMETHASONE\LENALIDOMIDE
     Indication: PLASMA CELL MYELOMA
     Dosage: 2.5 MG/KG, CYC
     Route: 048
  25. METOCLOPRAMIDE. [Concomitant]
     Active Substance: METOCLOPRAMIDE
     Indication: NAUSEA
     Dosage: 10 MG, AS REQUIRED
     Route: 048
     Dates: start: 20200415
  26. FENTANYL TRANSDERMAL SYSTEM [Concomitant]
     Active Substance: FENTANYL
     Indication: PAIN
     Dosage: 12.5 UG/HOUR, TID
     Route: 062
     Dates: start: 20200904
  27. AZITHROMYCIN ANHYDROUS. [Concomitant]
     Active Substance: AZITHROMYCIN ANHYDROUS
     Indication: BRONCHIECTASIS
     Dosage: 500 MG, TID
     Route: 048
     Dates: start: 201507
  28. RAMIPRIL. [Concomitant]
     Active Substance: RAMIPRIL
     Indication: HYPERTENSION
     Dosage: 7.5 MG, QD
     Route: 048
     Dates: start: 20191210, end: 20200515
  29. PHENYLEPHRINE + PREDNISOLONE ACETATE [Concomitant]
     Indication: CORNEAL TOXICITY
     Dosage: 1 GTT
     Route: 061
     Dates: start: 20200717
  30. LACTULOSE. [Concomitant]
     Active Substance: LACTULOSE
     Indication: CONSTIPATION
     Dosage: 200 MG, ONCE ONLY
     Route: 048
     Dates: start: 20200805, end: 20200806

REACTIONS (1)
  - Bronchitis [Recovered/Resolved]

NARRATIVE: CASE EVENT DATE: 20200625
